FAERS Safety Report 9027303 (Version 2)
Quarter: 2013Q1

REPORT INFORMATION
  Report Type: Spontaneous
  Country: IT (occurrence: IT)
  Receive Date: 20130123
  Receipt Date: 20130212
  Transmission Date: 20140127
  Serious: Yes (Death, Congenital Anomaly)
  Sender: FDA-Public Use
  Company Number: IT-ABBOTT-13P-083-1040037-00

PATIENT
  Sex: 0

DRUGS (1)
  1. DEPAKINE [Suspect]
     Indication: MATERNAL EXPOSURE TIMING UNSPECIFIED
     Route: 064

REACTIONS (3)
  - Abortion induced [Fatal]
  - Spina bifida [Unknown]
  - Foetal exposure during pregnancy [Unknown]
